FAERS Safety Report 23144990 (Version 1)
Quarter: 2023Q4

REPORT INFORMATION
  Report Type: Spontaneous
  Country: DE (occurrence: DE)
  Receive Date: 20231103
  Receipt Date: 20231103
  Transmission Date: 20240109
  Serious: Yes (Other)
  Sender: FDA-Public Use
  Company Number: DE-PFIZER INC-202300350271

PATIENT
  Age: 70 Year
  Sex: Female

DRUGS (1)
  1. IBRANCE [Suspect]
     Active Substance: PALBOCICLIB
     Indication: Breast cancer
     Dosage: 125 MG, (3 WEEKS OF INTAKE AND 1 WEEK OFF)

REACTIONS (3)
  - Osteonecrosis of jaw [Unknown]
  - Neoplasm progression [Unknown]
  - Cancer pain [Unknown]
